FAERS Safety Report 18417061 (Version 2)
Quarter: 2020Q4

REPORT INFORMATION
  Report Type: Spontaneous
  Country: US (occurrence: US)
  Receive Date: 20201022
  Receipt Date: 20201109
  Transmission Date: 20210114
  Serious: Yes (Other)
  Sender: FDA-Public Use
  Company Number: US-ALLERGAN-2040398US

PATIENT
  Sex: Female

DRUGS (1)
  1. LO LOESTRIN FE [Suspect]
     Active Substance: ETHINYL ESTRADIOL\NORETHINDRONE ACETATE
     Indication: PRODUCT USED FOR UNKNOWN INDICATION

REACTIONS (7)
  - General physical health deterioration [Unknown]
  - Menstrual disorder [Unknown]
  - Feeling abnormal [Unknown]
  - Amenorrhoea [Unknown]
  - Suicidal ideation [Unknown]
  - Depression [Unknown]
  - Infertility [Unknown]
